FAERS Safety Report 4753335-7 (Version None)
Quarter: 2005Q3

REPORT INFORMATION
  Report Type: 
  Country: None (occurrence: None)
  Receive Date: 20050826
  Receipt Date: 20050818
  Transmission Date: 20060218
  Serious: Yes (Hospitalization, Other)
  Sender: FDA-Public Use
  Company Number: GB-JNJFOC-20050804292

PATIENT
  Sex: Female
  Weight: 80 kg

DRUGS (10)
  1. REMICADE [Suspect]
     Indication: RHEUMATOID ARTHRITIS
     Route: 042
  2. METHOTREXATE [Concomitant]
     Route: 065
  3. NABUMETONE [Concomitant]
     Route: 065
  4. FOLIC ACID [Concomitant]
     Route: 065
  5. FERROUS SULFATE TAB [Concomitant]
     Route: 065
  6. BENDROFLUAZIDE [Concomitant]
     Route: 065
  7. CO-PROXAMOL [Concomitant]
     Route: 065
  8. CO-PROXAMOL [Concomitant]
     Route: 065
  9. ACETAMINOPHEN W/ CODEINE [Concomitant]
     Route: 065
  10. ACETAMINOPHEN W/ CODEINE [Concomitant]
     Route: 065

REACTIONS (1)
  - FALL [None]
